FAERS Safety Report 4838556-7 (Version None)
Quarter: 2005Q4

REPORT INFORMATION
  Report Type: 
  Country: None (occurrence: None)
  Receive Date: 20051123
  Receipt Date: 20051107
  Transmission Date: 20060501
  Serious: Yes (Hospitalization)
  Sender: FDA-Public Use
  Company Number: 200511IM000713

PATIENT
  Age: 54 Year
  Sex: Male
  Weight: 103.4201 kg

DRUGS (4)
  1. INTERFERON ALFACON-1 [Suspect]
     Indication: HEPATITIS C
     Dosage: 15 UG, QD, SUBCUTANEOUS
     Route: 058
     Dates: start: 20050921, end: 20051104
  2. RIBAVIRIN [Suspect]
     Indication: HEPATITIS C
     Dosage: 1200 MG, QD, ORAL
     Route: 048
     Dates: start: 20050921, end: 20051104
  3. LORATADINE [Concomitant]
  4. IBUPROFEN [Concomitant]

REACTIONS (3)
  - COLITIS [None]
  - DIVERTICULITIS [None]
  - RECTAL HAEMORRHAGE [None]
